FAERS Safety Report 6215393-2 (Version None)
Quarter: 2009Q2

REPORT INFORMATION
  Report Type: 
  Country: None (occurrence: None)
  Receive Date: 20090603
  Receipt Date: 20090521
  Transmission Date: 20091009
  Serious: Yes (Other)
  Sender: FDA-Public Use
  Company Number: BEN-2009-016

PATIENT
  Age: 33 Year
  Sex: Female
  Weight: 66.2252 kg

DRUGS (11)
  1. BENTYL [Suspect]
  2. AMRIX [Suspect]
     Indication: MIGRAINE
     Dosage: 15MG HS PO
     Route: 048
     Dates: start: 20081220, end: 20090204
  3. AMRIX [Suspect]
     Indication: MIGRAINE
     Dosage: 15MG HS PO
     Route: 048
     Dates: start: 20090214
  4. HYOSCYAMINE (HYOSCYAMINE) [Suspect]
     Dosage: 0.75MG (0.375MG; BID)
     Dates: start: 20081225
  5. ZONEGRAN [Concomitant]
  6. LEVOXYL [Concomitant]
  7. SPIRONOLACTONE [Concomitant]
  8. MULTI-VITAMIN [Concomitant]
  9. DOCUSTE SODIUM [Concomitant]
  10. MIRALAX [Concomitant]
  11. PROTONIX (PANTROPRAZOLE) [Concomitant]

REACTIONS (2)
  - RETINAL OEDEMA [None]
  - VISION BLURRED [None]
